FAERS Safety Report 18386979 (Version 1)
Quarter: 2020Q4

REPORT INFORMATION
  Report Type: Report from Study
  Country: GB (occurrence: GB)
  Receive Date: 20201015
  Receipt Date: 20201015
  Transmission Date: 20210114
  Serious: Yes (Other)
  Sender: FDA-Public Use
  Company Number: NVSC2020GB081119

PATIENT
  Sex: Female

DRUGS (2)
  1. METHOTREXATE. [Suspect]
     Active Substance: METHOTREXATE
     Indication: PRODUCT USED FOR UNKNOWN INDICATION
     Dosage: UNK
     Route: 065
  2. ERELZI [Suspect]
     Active Substance: ETANERCEPT-SZZS
     Indication: RHEUMATOID ARTHRITIS
     Dosage: 50 MG, QW
     Route: 058
     Dates: start: 20200207

REACTIONS (10)
  - Hypovitaminosis [Unknown]
  - Blood disorder [Not Recovered/Not Resolved]
  - Pain [Recovering/Resolving]
  - Depressed mood [Unknown]
  - Appetite disorder [Unknown]
  - Rheumatoid arthritis [Unknown]
  - Joint swelling [Recovering/Resolving]
  - Speech disorder [Unknown]
  - Sleep apnoea syndrome [Unknown]
  - Memory impairment [Unknown]
